FAERS Safety Report 7818445-6 (Version None)
Quarter: 2011Q4

REPORT INFORMATION
  Report Type: 
  Country: None (occurrence: None)
  Receive Date: 20111017
  Receipt Date: 20111016
  Transmission Date: 20120403
  Serious: Yes (Other)
  Sender: FDA-Public Use
  Company Number: CN-BAYER-2011-099333

PATIENT
  Age: 57 Year
  Sex: Female

DRUGS (1)
  1. ULTRAVIST 370 [Suspect]
     Indication: COMPUTERISED TOMOGRAM
     Dosage: 75 ML, ONCE
     Route: 042

REACTIONS (5)
  - PALPITATIONS [None]
  - FALL [None]
  - UNRESPONSIVE TO STIMULI [None]
  - TREMOR [None]
  - DEPRESSED LEVEL OF CONSCIOUSNESS [None]
